FAERS Safety Report 8926284 (Version 2)
Quarter: 2012Q4

REPORT INFORMATION
  Report Type: 
  Country: IL (occurrence: IL)
  Receive Date: 20121126
  Receipt Date: 20121224
  Transmission Date: 20130627
  Serious: Yes (Hospitalization, Other)
  Sender: FDA-Public Use
  Company Number: PHHY2012IL106452

PATIENT
  Age: 36 Year
  Sex: Male

DRUGS (3)
  1. GILENYA [Suspect]
     Indication: MULTIPLE SCLEROSIS
     Dosage: 0.5 mg, QD
     Route: 048
     Dates: start: 20120829, end: 20121110
  2. AMPICILLIN [Concomitant]
     Route: 042
  3. ACYCLOVIR [Concomitant]

REACTIONS (4)
  - Concussion [Unknown]
  - Pyrexia [Recovered/Resolved]
  - Cerebral haemorrhage [Unknown]
  - Central nervous system lesion [Unknown]
